FAERS Safety Report 20321452 (Version 1)
Quarter: 2022Q1

REPORT INFORMATION
  Report Type: Spontaneous
  Country: US (occurrence: US)
  Receive Date: 20220111
  Receipt Date: 20220111
  Transmission Date: 20220423
  Serious: No
  Sender: FDA-Public Use
  Company Number: US-drreddys-SPO/USA/22/0145599

PATIENT
  Age: 53 Year
  Sex: Female
  Weight: 69.3 kg

DRUGS (2)
  1. SUMATRIPTAN [Suspect]
     Active Substance: SUMATRIPTAN
     Indication: Migraine
     Dosage: 6 MG/0.5 ML
     Dates: start: 20211220
  2. SUMATRIPTAN [Suspect]
     Active Substance: SUMATRIPTAN
     Route: 042

REACTIONS (2)
  - Product dose omission issue [Unknown]
  - Product quality issue [Unknown]
